FAERS Safety Report 8244339-0 (Version None)
Quarter: 2012Q1

REPORT INFORMATION
  Report Type: 
  Country: None (occurrence: None)
  Receive Date: 20120329
  Receipt Date: 20120308
  Transmission Date: 20120608
  Serious: Yes (Other)
  Sender: FDA-Public Use
  Company Number: US-PFIZER INC-2012062886

PATIENT

DRUGS (3)
  1. DETROL LA [Suspect]
     Dosage: UNK
  2. PREMARIN [Suspect]
     Dosage: UNK
  3. VISTARIL [Suspect]
     Dosage: UNK

REACTIONS (1)
  - FALL [None]
